FAERS Safety Report 8144500-X (Version None)
Quarter: 2012Q1

REPORT INFORMATION
  Report Type: 
  Country: None (occurrence: None)
  Receive Date: 20120214
  Receipt Date: 20120210
  Transmission Date: 20120608
  Serious: Yes (Hospitalization)
  Sender: FDA-Public Use
  Company Number: ZYD-12-AE-031

PATIENT
  Age: 60 Year
  Sex: Male

DRUGS (5)
  1. LOSARTAN POTASSIUM [Suspect]
     Indication: HYPERTENSION
     Dosage: 100MG-DAILY-ORAL
     Route: 048
     Dates: start: 20111219, end: 20120124
  2. CO-Q 10 VITAMINS [Concomitant]
  3. B-COMPLEX VITAMINS [Concomitant]
  4. VYTORIN [Concomitant]
  5. ASPIRIN [Concomitant]

REACTIONS (9)
  - FEELING DRUNK [None]
  - DYSARTHRIA [None]
  - PRODUCT SUBSTITUTION ISSUE [None]
  - LOSS OF CONSCIOUSNESS [None]
  - THERAPY CESSATION [None]
  - CARDIAC ARREST [None]
  - BLOOD PRESSURE INCREASED [None]
  - ATRIOVENTRICULAR BLOCK COMPLETE [None]
  - DIZZINESS [None]
